FAERS Safety Report 25942166 (Version 1)
Quarter: 2025Q4

REPORT INFORMATION
  Report Type: Spontaneous
  Country: US (occurrence: US)
  Receive Date: 20251020
  Receipt Date: 20251020
  Transmission Date: 20260118
  Serious: Yes (Other)
  Sender: GALPHARM INTERNATIONAL
  Company Number: US-MLMSERVICE-20251001-PI665021-00137-1

PATIENT
  Age: 24 Year
  Sex: Female

DRUGS (2)
  1. ESOMEPRAZOLE MAGNESIUM [Suspect]
     Active Substance: ESOMEPRAZOLE MAGNESIUM
     Indication: Product used for unknown indication
     Dosage: UNKNOWN, UNKNOWN
     Route: 048
  2. FREMANEZUMAB [Suspect]
     Active Substance: FREMANEZUMAB
     Indication: Migraine
     Dosage: FREMANEZUMAB 225 MG SUBCUTANEOUSLY EVERY 30 DAYS FOR 18 MONTHS
     Route: 058

REACTIONS (1)
  - Tubulointerstitial nephritis [Recovered/Resolved]
